FAERS Safety Report 12679448 (Version 1)
Quarter: 2016Q3

REPORT INFORMATION
  Report Type: Spontaneous
  Country: US (occurrence: None)
  Receive Date: 20160823
  Receipt Date: 20160823
  Transmission Date: 20161109
  Serious: No
  Sender: FDA-Public Use
  Company Number: None

PATIENT
  Age: 77 Year
  Sex: Male
  Weight: 90.27 kg

DRUGS (6)
  1. METOPROLOL. [Suspect]
     Active Substance: METOPROLOL
     Indication: VASCULAR GRAFT
     Dosage: 60 TABLET(S) TWICE A DAY TAKEN BY MOUTH
     Route: 048
     Dates: start: 20160507, end: 20160822
  2. SIMVASTIN [Concomitant]
     Active Substance: SIMVASTATIN
  3. PROBIOTIC [Concomitant]
     Active Substance: PROBIOTICS NOS
  4. IRON PILL [Concomitant]
     Active Substance: IRON
  5. AVAPRO [Concomitant]
     Active Substance: IRBESARTAN
  6. VITAMIN D3 [Concomitant]
     Active Substance: CHOLECALCIFEROL

REACTIONS (7)
  - Dizziness [None]
  - Loss of consciousness [None]
  - Fall [None]
  - Contusion [None]
  - Myalgia [None]
  - Asthenia [None]
  - Head injury [None]
